FAERS Safety Report 4357942-5 (Version None)
Quarter: 2004Q2

REPORT INFORMATION
  Report Type: 
  Country: None (occurrence: None)
  Receive Date: 20040510
  Receipt Date: 20040423
  Transmission Date: 20050107
  Serious: Yes (Hospitalization)
  Sender: FDA-Public Use
  Company Number: 165003

PATIENT
  Age: 62 Year
  Sex: Female
  Weight: 104.3273 kg

DRUGS (3)
  1. AVONEX [Suspect]
     Indication: MULTIPLE SCLEROSIS
     Dosage: 30 MCG QW IM
     Dates: start: 19990101
  2. NEURONTIN [Concomitant]
  3. AMANTADINE HCL [Concomitant]

REACTIONS (6)
  - ANKLE FRACTURE [None]
  - DIABETES MELLITUS [None]
  - FALL [None]
  - IMPAIRED HEALING [None]
  - LOWER LIMB FRACTURE [None]
  - MUSCULAR WEAKNESS [None]
